FAERS Safety Report 6920032-9 (Version None)
Quarter: 2010Q3

REPORT INFORMATION
  Report Type: 
  Country: None (occurrence: None)
  Receive Date: 20100730
  Receipt Date: 20090717
  Transmission Date: 20110219
  Serious: Yes (Other)
  Sender: FDA-Public Use
  Company Number: OMPQ-PR-0907S-0658

PATIENT
  Age: 68 Year
  Sex: Male

DRUGS (1)
  1. OMNIPAQUE 140 [Suspect]
     Indication: PRODUCT USED FOR UNKNOWN INDICATION
     Dosage: 120 ML, SINGLE DOSE, I.V.
     Route: 042
     Dates: start: 20090717, end: 20090717

REACTIONS (3)
  - ANAPHYLACTOID REACTION [None]
  - ANGIOEDEMA [None]
  - LARYNGOSPASM [None]
